FAERS Safety Report 5948718-3 (Version None)
Quarter: 2008Q4

REPORT INFORMATION
  Report Type: 
  Country: None (occurrence: None)
  Receive Date: 20081107
  Receipt Date: 20081024
  Transmission Date: 20090506
  Serious: Yes (Death)
  Sender: FDA-Public Use
  Company Number: 14663

PATIENT
  Age: 53 Year
  Sex: Male

DRUGS (5)
  1. MORPHINE SULFATE [Suspect]
     Indication: BONE PAIN
  2. MORPHINE SULFATE [Concomitant]
  3. SOMA [Concomitant]
  4. TRAZODONE HCL [Concomitant]
  5. PROZAC [Concomitant]

REACTIONS (2)
  - ACCIDENTAL OVERDOSE [None]
  - DRUG TOXICITY [None]
